FAERS Safety Report 6163374-X (Version None)
Quarter: 2009Q2

REPORT INFORMATION
  Report Type: 
  Country: None (occurrence: None)
  Receive Date: 20090420
  Receipt Date: 20090420
  Transmission Date: 20091009
  Serious: No
  Sender: FDA-Public Use
  Company Number: None

PATIENT
  Age: 88 Year
  Sex: Male
  Weight: 77.8 kg

DRUGS (1)
  1. TRAZODONE HCL [Suspect]
     Dosage: 25MG MG HS PO
     Route: 048
     Dates: start: 20081104, end: 20081203

REACTIONS (1)
  - TINNITUS [None]
